FAERS Safety Report 4741405-9 (Version None)
Quarter: 2005Q3

REPORT INFORMATION
  Report Type: 
  Country: None (occurrence: None)
  Receive Date: 20050810
  Receipt Date: 20050707
  Transmission Date: 20060218
  Serious: Yes (Other)
  Sender: FDA-Public Use
  Company Number: JP-BRISTOL-MYERS SQUIBB COMPANY-13029889

PATIENT
  Age: 59 Year
  Sex: Female

DRUGS (5)
  1. PARAPLATIN [Suspect]
     Indication: OVARIAN CANCER
     Route: 041
     Dates: start: 20050607, end: 20050607
  2. TAXOL [Concomitant]
     Indication: OVARIAN CANCER
     Route: 041
     Dates: start: 20011101, end: 20050607
  3. DECADRON [Concomitant]
     Route: 041
     Dates: start: 20050607, end: 20050607
  4. GASTER [Concomitant]
     Route: 041
     Dates: start: 20050607, end: 20050607
  5. KYTRIL [Concomitant]
     Route: 041
     Dates: start: 20050607, end: 20050607

REACTIONS (1)
  - ANAPHYLACTIC SHOCK [None]
